FAERS Safety Report 10419224 (Version 1)
Quarter: 2014Q2

REPORT INFORMATION
  Report Type: Spontaneous
  Country: US (occurrence: None)
  Receive Date: 20140625
  Receipt Date: 20140625
  Transmission Date: 20141212
  Serious: No
  Sender: FDA-Public Use
  Company Number: A-NJ2014-96891

PATIENT
  Age: 40 Year
  Sex: Male

DRUGS (4)
  1. OPSUMIT (MACITENTAN) TABLET [Suspect]
     Indication: PULMONARY ARTERIAL HYPERTENSION
     Route: 048
     Dates: start: 20140116
  2. RIOCIGUAT [Concomitant]
  3. TYVASO (TREPROSTINIL SODIUM) [Concomitant]
  4. COUMADIN (WARFARIN SODIUM) [Concomitant]

REACTIONS (1)
  - Weight increased [None]
